FAERS Safety Report 9649193 (Version 2)
Quarter: 2013Q4

REPORT INFORMATION
  Report Type: Spontaneous
  Country: US (occurrence: US)
  Receive Date: 20131028
  Receipt Date: 20131028
  Transmission Date: 20140711
  Serious: No
  Sender: FDA-Public Use
  Company Number: -SAAVPROD-POMP-1001759

PATIENT
  Age: 2 Year
  Sex: Female
  Weight: 14.4 kg

DRUGS (3)
  1. ALGLUCOSIDASE ALFA [Suspect]
     Indication: GLYCOGEN STORAGE DISEASE TYPE II
     Dosage: 20 MG/KG, Q2W
     Route: 042
     Dates: start: 20090512
  2. SODIUM CHLORIDE [Concomitant]
     Dosage: UNK
     Route: 042
  3. HEPARIN SODIUM [Concomitant]
     Indication: CATHETER MANAGEMENT
     Dosage: UNK
     Route: 042

REACTIONS (1)
  - Infusion site swelling [Recovered/Resolved]
